FAERS Safety Report 14078105 (Version 6)
Quarter: 2018Q2

REPORT INFORMATION
  Report Type: Report from Study
  Country: None (occurrence: TR)
  Receive Date: 20171012
  Receipt Date: 20180419
  Transmission Date: 20180711
  Serious: Yes (Hospitalization)
  Sender: FDA-Public Use
  Company Number: TR-ABBVIE-17K-161-2126857-00

PATIENT
  Age: 72 Year
  Sex: Male
  Weight: 76 kg

DRUGS (6)
  1. LEVOTIRON [Concomitant]
     Active Substance: LEVOTHYROXINE SODIUM
     Indication: HYPERTHYROIDISM
     Route: 048
     Dates: start: 2007
  2. MINOSET [Concomitant]
     Active Substance: ACETAMINOPHEN
     Indication: PARKINSON^S DISEASE
     Route: 048
  3. MONOKET LONG [Concomitant]
     Indication: CARDIOVASCULAR DISORDER
     Route: 048
  4. MADOPAR HBS [Concomitant]
     Active Substance: BENSERAZIDE HYDROCHLORIDE\LEVODOPA
     Indication: PARKINSON^S DISEASE
     Dosage: FREQUENCY: 1X2
     Route: 048
  5. DUODOPA [Suspect]
     Active Substance: CARBIDOPA\LEVODOPA
     Indication: PARKINSON^S DISEASE
     Dosage: MORNING DOSE : 7.0 ML CONTINOUS DOSE: 3.8 ML EXTRA DOSE: 1.0 ML
     Route: 050
     Dates: start: 20130603, end: 20171010
  6. DUODOPA [Suspect]
     Active Substance: CARBIDOPA\LEVODOPA
     Dosage: MORNING DOSE : 7.0 ML CONTINOUS DOSE: 3.5 ML EXTRA DOSE: 1.0 ML
     Route: 050
     Dates: start: 20171010

REACTIONS (8)
  - Balance disorder [Recovered/Resolved]
  - Dyskinesia [Recovered/Resolved]
  - Weight decreased [Unknown]
  - Pain in extremity [Not Recovered/Not Resolved]
  - Dysphagia [Recovered/Resolved]
  - Weight decreased [Recovered/Resolved]
  - Prostatic disorder [Not Recovered/Not Resolved]
  - Fall [Recovered/Resolved]

NARRATIVE: CASE EVENT DATE: 2015
